FAERS Safety Report 9351523 (Version 1)
Quarter: 2013Q2

REPORT INFORMATION
  Report Type: Spontaneous
  Country: US (occurrence: US)
  Receive Date: 20130617
  Receipt Date: 20130617
  Transmission Date: 20140414
  Serious: No
  Sender: FDA-Public Use
  Company Number: US-PFIZER INC-2013177481

PATIENT
  Age: 46 Year
  Sex: Female
  Weight: 104 kg

DRUGS (7)
  1. LEVOXYL [Suspect]
     Indication: HYPOTHYROIDISM
     Dosage: UNK
  2. LEVOXYL [Suspect]
     Dosage: UNK
     Dates: end: 201305
  3. LYRICA [Concomitant]
     Dosage: 50 MG, 2X/DAY
  4. CYTOMEL [Concomitant]
     Dosage: 5 UG, 1X/DAY
  5. XANAX [Concomitant]
     Dosage: BY TAKING TWO 0.5MG, 1X/DAY
  6. TRAMADOL [Concomitant]
     Dosage: UNK, 1X/DAY
  7. FLEXERIL [Concomitant]
     Dosage: 10 MG, UNK

REACTIONS (2)
  - Blood thyroid stimulating hormone abnormal [Unknown]
  - C-reactive protein increased [Unknown]
